FAERS Safety Report 18497015 (Version 1)
Quarter: 2020Q4

REPORT INFORMATION
  Report Type: Spontaneous
  Country: US (occurrence: US)
  Receive Date: 20201112
  Receipt Date: 20201112
  Transmission Date: 20210114
  Serious: Yes (Death)
  Sender: FDA-Public Use
  Company Number: US-BIOHAVEN PHARMACEUTICALS-2020BHV00699

PATIENT
  Age: 50 Year
  Sex: Female

DRUGS (2)
  1. MULTIPLE OPIOIDS [Suspect]
     Active Substance: UNSPECIFIED INGREDIENT
  2. NURTEC ODT [Suspect]
     Active Substance: RIMEGEPANT SULFATE
     Indication: MIGRAINE
     Dosage: AS NEEDED
     Dates: start: 202009, end: 202009

REACTIONS (2)
  - Aneurysm [Fatal]
  - Overdose [Fatal]

NARRATIVE: CASE EVENT DATE: 20200925
